FAERS Safety Report 6366766-9 (Version None)
Quarter: 2009Q3

REPORT INFORMATION
  Report Type: 
  Country: None (occurrence: None)
  Receive Date: 20090921
  Receipt Date: 20090911
  Transmission Date: 20100115
  Serious: Yes (Other)
  Sender: FDA-Public Use
  Company Number: US-ASTRAZENECA-2009SE05913

PATIENT
  Sex: Male

DRUGS (1)
  1. SYMBICORT [Suspect]
     Indication: ASTHMA
     Dosage: 80 UG / 4.5 UG 2 PUFFS TWICE A DAY
     Route: 055

REACTIONS (2)
  - APHONIA [None]
  - PRODUCT TASTE ABNORMAL [None]
